FAERS Safety Report 23154501 (Version 1)
Quarter: 2023Q4

REPORT INFORMATION
  Report Type: Report from Study
  Country: US (occurrence: US)
  Receive Date: 20231107
  Receipt Date: 20231107
  Transmission Date: 20240109
  Serious: Yes (Other)
  Sender: FDA-Public Use
  Company Number: US-ALXN-A202310188

PATIENT
  Sex: Female
  Weight: 59.2 kg

DRUGS (3)
  1. STRENSIQ [Suspect]
     Active Substance: ASFOTASE ALFA
     Indication: Hypophosphatasia
     Dosage: 80 UNK
     Route: 065
  2. LEVOTHYROXINE [Suspect]
     Active Substance: LEVOTHYROXINE
     Indication: Hypothyroidism
     Dosage: UNK
     Route: 065
  3. LEVOTHYROXINE [Suspect]
     Active Substance: LEVOTHYROXINE
     Dosage: 100 MICROGRAM
     Route: 065

REACTIONS (12)
  - Hyperthyroidism [Unknown]
  - Sensitive skin [Unknown]
  - Skin tightness [Unknown]
  - Paraesthesia [Unknown]
  - Pruritus [Unknown]
  - Injection site discomfort [Unknown]
  - Fatigue [Unknown]
  - Tremor [Unknown]
  - Drug hypersensitivity [Unknown]
  - Injection site pain [Unknown]
  - Injection site reaction [Unknown]
  - Injection site mass [Unknown]

NARRATIVE: CASE EVENT DATE: 20230807
